FAERS Safety Report 6539054-5 (Version None)
Quarter: 2010Q1

REPORT INFORMATION
  Report Type: 
  Country: None (occurrence: None)
  Receive Date: 20100115
  Receipt Date: 20100105
  Transmission Date: 20100710
  Serious: Yes (Other)
  Sender: FDA-Public Use
  Company Number: PHHY2010BR00647

PATIENT
  Sex: Female
  Weight: 69 kg

DRUGS (3)
  1. FORASEQ [Suspect]
     Indication: DYSPNOEA
     Dosage: ONE CAPSULE DAILY
     Dates: start: 20091218
  2. FORASEQ [Suspect]
     Dosage: 2 CAPSULE / DAY
  3. DUOVENT [Concomitant]
     Indication: DYSPNOEA
     Dosage: UNK

REACTIONS (6)
  - DYSPNOEA [None]
  - MALAISE [None]
  - MENTAL DISORDER [None]
  - NASAL CONGESTION [None]
  - THROAT TIGHTNESS [None]
  - TREATMENT NONCOMPLIANCE [None]
